FAERS Safety Report 11616262 (Version 3)
Quarter: 2016Q1

REPORT INFORMATION
  Report Type: Report from Study
  Country: FR (occurrence: FR)
  Receive Date: 20151009
  Receipt Date: 20160331
  Transmission Date: 20160525
  Serious: Yes (Life-Threatening, Hospitalization, Other)
  Sender: FDA-Public Use
  Company Number: FR-PFIZER INC-2015324937

PATIENT
  Age: 59 Year
  Sex: Male
  Weight: 72 kg

DRUGS (1)
  1. SUNITINIB MALATE. [Suspect]
     Active Substance: SUNITINIB MALATE
     Indication: METASTATIC RENAL CELL CARCINOMA
     Dosage: 50 MG, DAILY
     Route: 048
     Dates: start: 20150904, end: 20150919

REACTIONS (6)
  - Acute kidney injury [Recovered/Resolved]
  - Anuria [Recovered/Resolved with Sequelae]
  - Urinary retention [Recovered/Resolved]
  - Diverticulitis [Recovered/Resolved]
  - Intestinal perforation [Recovered/Resolved with Sequelae]
  - Peritonitis [Recovered/Resolved]

NARRATIVE: CASE EVENT DATE: 20150917
